FAERS Safety Report 10184575 (Version 1)
Quarter: 2014Q2

REPORT INFORMATION
  Report Type: Spontaneous
  Country: IE (occurrence: US)
  Receive Date: 20140521
  Receipt Date: 20140521
  Transmission Date: 20141212
  Serious: Yes (Hospitalization)
  Sender: FDA-Public Use
  Company Number: 2014SP002844

PATIENT
  Age: 70 Year
  Sex: Female

DRUGS (16)
  1. VANCOMYCIN [Suspect]
     Indication: PRODUCT USED FOR UNKNOWN INDICATION
  2. FLUTICASONE PROPIONATE [Suspect]
     Indication: ASTHMA
     Route: 055
  3. FLUTICASONE PROPIONATE [Suspect]
     Indication: CHRONIC OBSTRUCTIVE PULMONARY DISEASE
     Route: 055
  4. FLUTICASONE PROPIONATE [Suspect]
     Indication: BRONCHITIS CHRONIC
     Route: 055
  5. SALMETEROL XINAFOATE [Suspect]
     Indication: ASTHMA
     Route: 037
  6. SALMETEROL XINAFOATE [Suspect]
     Indication: CHRONIC OBSTRUCTIVE PULMONARY DISEASE
     Route: 037
  7. SALMETEROL XINAFOATE [Suspect]
     Indication: BRONCHITIS CHRONIC
     Route: 037
  8. ALBUTEROL SULFATE [Suspect]
     Indication: ASTHMA
     Route: 055
  9. ALBUTEROL SULFATE [Suspect]
     Indication: CHRONIC OBSTRUCTIVE PULMONARY DISEASE
     Route: 055
  10. ALBUTEROL SULFATE [Suspect]
     Indication: BRONCHITIS CHRONIC
     Route: 055
  11. SERTRALINE HYDROCHLORIDE [Concomitant]
  12. MONTELUKAST SODIUM [Concomitant]
  13. OXYBUTYNIN [Concomitant]
  14. LEVOTHYROXINE SODIUM [Concomitant]
  15. TIOTROPIUM BROMIDE [Concomitant]
  16. NORMAL IMMUNOGLOBULIN [Concomitant]

REACTIONS (4)
  - Influenza [Recovering/Resolving]
  - Bronchitis [Recovering/Resolving]
  - Pneumonia [Recovering/Resolving]
  - Anaphylactic shock [Unknown]
